FAERS Safety Report 12432438 (Version 1)
Quarter: 2016Q2

REPORT INFORMATION
  Report Type: Spontaneous
  Country: US (occurrence: None)
  Receive Date: 20160602
  Receipt Date: 20160602
  Transmission Date: 20160815
  Serious: Yes (Other)
  Sender: FDA-Public Use
  Company Number: None

PATIENT
  Age: 66 Year
  Sex: Male
  Weight: 87.09 kg

DRUGS (3)
  1. OXYCODONE [Concomitant]
     Active Substance: OXYCODONE
  2. LEVOFLOXACIN 750 MG TABLET [Suspect]
     Active Substance: LEVOFLOXACIN
     Route: 048
     Dates: start: 20160430, end: 20160503
  3. METOPROLOL SUCCINATE ER [Concomitant]
     Active Substance: METOPROLOL SUCCINATE

REACTIONS (2)
  - Tendon pain [None]
  - Abasia [None]

NARRATIVE: CASE EVENT DATE: 20160504
